FAERS Safety Report 23360647 (Version 1)
Quarter: 2024Q1

REPORT INFORMATION
  Report Type: Spontaneous
  Country: US (occurrence: US)
  Receive Date: 20240103
  Receipt Date: 20240103
  Transmission Date: 20240410
  Serious: No
  Sender: FDA-Public Use
  Company Number: US-ELI_LILLY_AND_COMPANY-US202401000638

PATIENT
  Age: 63 Year
  Sex: Female

DRUGS (1)
  1. MOUNJARO [Suspect]
     Active Substance: TIRZEPATIDE
     Indication: Hormone level abnormal
     Dosage: 2.5 MG, OTHER (DID NOT USE EVERY WEEK)
     Route: 058

REACTIONS (2)
  - Off label use [Unknown]
  - Injection site injury [Unknown]

NARRATIVE: CASE EVENT DATE: 20231228
